FAERS Safety Report 12330564 (Version 4)
Quarter: 2016Q2

REPORT INFORMATION
  Report Type: Spontaneous
  Country: US (occurrence: US)
  Receive Date: 20160504
  Receipt Date: 20160603
  Transmission Date: 20160815
  Serious: Yes (Other)
  Sender: FDA-Public Use
  Company Number: US-GLENMARK PHARMACEUTICALS INC, USA.-2016GMK022693

PATIENT

DRUGS (2)
  1. LITHIUM CARBONATE. [Suspect]
     Active Substance: LITHIUM CARBONATE
     Indication: HYPOMANIA
     Dosage: 450 MG, BID
     Route: 048
  2. DEPAKOTE [Concomitant]
     Active Substance: DIVALPROEX SODIUM
     Indication: BIPOLAR DISORDER
     Dosage: UNK
     Route: 048

REACTIONS (16)
  - Cerebellar atrophy [Not Recovered/Not Resolved]
  - Speech disorder [Not Recovered/Not Resolved]
  - Balance disorder [Unknown]
  - Condition aggravated [Not Recovered/Not Resolved]
  - Gait disturbance [Not Recovered/Not Resolved]
  - Hallucination [Unknown]
  - Vertigo [Unknown]
  - Muscular weakness [Unknown]
  - Lipoma [Unknown]
  - Incontinence [Unknown]
  - Mental disorder [Not Recovered/Not Resolved]
  - Hypoaesthesia [Not Recovered/Not Resolved]
  - Photopsia [Recovered/Resolved]
  - Mania [Recovered/Resolved]
  - Ataxia [Not Recovered/Not Resolved]
  - Insomnia [Unknown]

NARRATIVE: CASE EVENT DATE: 199912
